FAERS Safety Report 8968852 (Version 1)
Quarter: 2012Q4

REPORT INFORMATION
  Report Type: 
  Country: US (occurrence: US)
  Receive Date: 20121218
  Receipt Date: 20121218
  Transmission Date: 20130627
  Serious: No
  Sender: FDA-Public Use
  Company Number: US-BRISTOL-MYERS SQUIBB COMPANY-16366023

PATIENT
  Age: 59 Year
  Sex: Female

DRUGS (3)
  1. ABILIFY [Suspect]
     Indication: DEPRESSION
     Dosage: 1DF:2-2.5Mg
Stopped 6-9 Months ago
     Dates: end: 2010
  2. FLUOXETINE [Suspect]
     Indication: DEPRESSION
  3. LORAZEPAM [Concomitant]
     Indication: SLEEP DISORDER

REACTIONS (1)
  - Dyskinesia [Recovering/Resolving]
